FAERS Safety Report 11233208 (Version 3)
Quarter: 2015Q4

REPORT INFORMATION
  Report Type: Spontaneous
  Country: AR (occurrence: AR)
  Receive Date: 20150701
  Receipt Date: 20151109
  Transmission Date: 20160304
  Serious: Yes (Other)
  Sender: FDA-Public Use
  Company Number: AR-AMGEN-ARGSP2015063676

PATIENT
  Age: 56 Year
  Sex: Female

DRUGS (4)
  1. ENBREL [Suspect]
     Active Substance: ETANERCEPT
     Indication: RHEUMATOID ARTHRITIS
     Dosage: 50 MG, WEEKLY
     Route: 065
     Dates: start: 20130304, end: 201509
  2. METOTREXATO                        /00113801/ [Concomitant]
     Active Substance: METHOTREXATE
     Dosage: UNK
     Dates: start: 2002
  3. PREDNISONA [Concomitant]
     Active Substance: PREDNISONE
     Dosage: UNK
     Dates: start: 2000
  4. FOLIC ACID. [Concomitant]
     Active Substance: FOLIC ACID
     Dosage: UNK
     Dates: start: 2002

REACTIONS (3)
  - Chondropathy [Recovered/Resolved]
  - Arthropathy [Recovered/Resolved]
  - Bone disorder [Recovered/Resolved]

NARRATIVE: CASE EVENT DATE: 2013
